FAERS Safety Report 24183546 (Version 1)
Quarter: 2024Q3

REPORT INFORMATION
  Report Type: Spontaneous
  Country: US (occurrence: None)
  Receive Date: 20240806
  Receipt Date: 20240806
  Transmission Date: 20241017
  Serious: Yes (Death)
  Sender: Public
  Company Number: None

PATIENT
  Age: 86 Year
  Sex: Female

DRUGS (1)
  1. IMATINIB MESYLATE [Suspect]
     Active Substance: IMATINIB MESYLATE
     Indication: Gastrointestinal neoplasm
     Dosage: FREQUENCY : DAILY;?
     Route: 048
     Dates: start: 20220418, end: 20240608

REACTIONS (1)
  - Death [None]

NARRATIVE: CASE EVENT DATE: 20240806
